FAERS Safety Report 19978557 (Version 3)
Quarter: 2021Q4

REPORT INFORMATION
  Report Type: Report from Study
  Country: FR (occurrence: FR)
  Receive Date: 20211020
  Receipt Date: 20211129
  Transmission Date: 20220303
  Serious: Yes (Hospitalization)
  Sender: FDA-Public Use
  Company Number: FR-GLAXOSMITHKLINE-FR2021GSK213054

PATIENT
  Age: 72 Year
  Sex: Female

DRUGS (14)
  1. NIRAPARIB [Suspect]
     Active Substance: NIRAPARIB
     Indication: Ovarian cancer
     Dosage: 200 MG, QD
     Route: 048
  2. LEVOTHYROXINE [Concomitant]
     Active Substance: LEVOTHYROXINE
     Dosage: UNK
  3. DOXORUBICIN HYDROCHLORIDE [Concomitant]
     Active Substance: DOXORUBICIN HYDROCHLORIDE
     Indication: Ovarian cancer
     Dosage: CYCLE 1, DAY 28
     Dates: start: 20200625, end: 20200625
  4. DOXORUBICIN HYDROCHLORIDE [Concomitant]
     Active Substance: DOXORUBICIN HYDROCHLORIDE
     Dosage: CYCLE 2, DAY 28
     Dates: start: 20200724, end: 20200724
  5. DOXORUBICIN HYDROCHLORIDE [Concomitant]
     Active Substance: DOXORUBICIN HYDROCHLORIDE
     Dosage: CYCLE 3, DAY 28
     Dates: start: 20200821, end: 20200821
  6. DOXORUBICIN HYDROCHLORIDE [Concomitant]
     Active Substance: DOXORUBICIN HYDROCHLORIDE
     Dosage: CYCLE 4, DAY 28
     Dates: start: 20200918, end: 20200918
  7. DOXORUBICIN HYDROCHLORIDE [Concomitant]
     Active Substance: DOXORUBICIN HYDROCHLORIDE
     Dosage: CYCLE 5, DAY 28
     Dates: start: 20201016, end: 20201016
  8. DOXORUBICIN HYDROCHLORIDE [Concomitant]
     Active Substance: DOXORUBICIN HYDROCHLORIDE
     Dosage: CYCLE 5, DAY 28
     Dates: start: 20201109, end: 20201109
  9. CARBOPLATIN [Concomitant]
     Active Substance: CARBOPLATIN
     Indication: Ovarian cancer
     Dosage: CYCLE 1, DAY 28
     Dates: start: 20200625, end: 20200625
  10. CARBOPLATIN [Concomitant]
     Active Substance: CARBOPLATIN
     Dosage: CYCLE 2, DAY 28
     Dates: start: 20200724, end: 20200724
  11. CARBOPLATIN [Concomitant]
     Active Substance: CARBOPLATIN
     Dosage: CYCLE 3, DAY 28
     Dates: start: 20200821, end: 20200821
  12. CARBOPLATIN [Concomitant]
     Active Substance: CARBOPLATIN
     Dosage: CYCLE 4, DAY 28
     Dates: start: 20200918, end: 20200918
  13. CARBOPLATIN [Concomitant]
     Active Substance: CARBOPLATIN
     Dosage: CYCLE 5 DAY 28
     Dates: start: 20201016, end: 20201016
  14. CARBOPLATIN [Concomitant]
     Active Substance: CARBOPLATIN
     Dosage: CYCLE 6, DAY 28
     Dates: start: 20201109, end: 20201109

REACTIONS (2)
  - Intestinal obstruction [Recovered/Resolved]
  - Intestinal obstruction [Recovered/Resolved]

NARRATIVE: CASE EVENT DATE: 20201228
